FAERS Safety Report 20006625 (Version 1)
Quarter: 2021Q4

REPORT INFORMATION
  Report Type: Spontaneous
  Country: FR (occurrence: FR)
  Receive Date: 20211028
  Receipt Date: 20211028
  Transmission Date: 20220303
  Serious: Yes (Other)
  Sender: FDA-Public Use
  Company Number: None

PATIENT

DRUGS (3)
  1. SUBUTEX [Suspect]
     Active Substance: BUPRENORPHINE HYDROCHLORIDE
     Indication: Product used for unknown indication
     Dosage: UNK
     Route: 045
     Dates: start: 20200901, end: 20200901
  2. PHENERGAN [Suspect]
     Active Substance: PROMETHAZINE HYDROCHLORIDE
     Indication: Product used for unknown indication
     Dosage: 500 MILLIGRAM, QD (25 MG COATED TABLETS)
     Route: 048
     Dates: start: 20200902, end: 20200902
  3. CODEINE\HERBALS [Suspect]
     Active Substance: CODEINE\HERBALS
     Indication: Product used for unknown indication
     Dosage: UNK (1 VIAL IN 1 DOSE)
     Route: 048
     Dates: start: 20200902, end: 20200902

REACTIONS (4)
  - Aggression [Recovered/Resolved]
  - Drug abuse [Not Recovered/Not Resolved]
  - Toxicity to various agents [Recovered/Resolved]
  - Intentional product use issue [Recovered/Resolved]

NARRATIVE: CASE EVENT DATE: 20200901
